FAERS Safety Report 7552585-4 (Version None)
Quarter: 2011Q2

REPORT INFORMATION
  Report Type: 
  Country: None (occurrence: None)
  Receive Date: 20110616
  Receipt Date: 20110613
  Transmission Date: 20111010
  Serious: Yes (Other)
  Sender: FDA-Public Use
  Company Number: US-B.I. PHARMACEUTICALS,INC./RIDGEFIELD-2011-BP-05509BP

PATIENT
  Age: 71 Year
  Sex: Male

DRUGS (9)
  1. NORPACE [Concomitant]
     Indication: ATRIAL FIBRILLATION
     Route: 048
  2. PRADAXA [Suspect]
     Indication: ATRIAL FIBRILLATION
     Dosage: 300 MG
     Route: 048
     Dates: start: 20110101
  3. FLECAINIDE ACETATE [Concomitant]
     Dosage: 100 MG
  4. PRADAXA [Suspect]
     Indication: DRUG THERAPY CHANGED
  5. TAMBOCOR [Concomitant]
     Route: 048
  6. ISOSORBIDE DINITRATE [Concomitant]
     Dosage: 30 MG
     Route: 048
  7. NIASPAN [Concomitant]
     Dosage: 500 MG
  8. AMLODIPINE [Concomitant]
     Dosage: 5 MG
  9. DEPAKOTE [Concomitant]
     Dosage: 500 MG

REACTIONS (4)
  - BLINDNESS [None]
  - TRANSIENT ISCHAEMIC ATTACK [None]
  - DYSARTHRIA [None]
  - BALANCE DISORDER [None]
